FAERS Safety Report 4349573-8 (Version None)
Quarter: 2004Q1

REPORT INFORMATION
  Report Type: 
  Country: None (occurrence: None)
  Receive Date: 20040329
  Receipt Date: 20031124
  Transmission Date: 20041129
  Serious: No
  Sender: FDA-Public Use
  Company Number: USA031153217

PATIENT
  Age: 29 Year
  Sex: Male

DRUGS (2)
  1. STRATTERA [Suspect]
     Dosage: 40 MG/DAY
  2. WELLBUTRIN [Concomitant]

REACTIONS (2)
  - TESTICULAR PAIN [None]
  - URINARY RETENTION [None]
